FAERS Safety Report 8888789 (Version 5)
Quarter: 2012Q4

REPORT INFORMATION
  Report Type: 
  Country: US (occurrence: US)
  Receive Date: 20121106
  Receipt Date: 20121128
  Transmission Date: 20130627
  Serious: Yes (Other)
  Sender: FDA-Public Use
  Company Number: US-JNJFOC-20121016271

PATIENT
  Age: 82 Year
  Sex: Male

DRUGS (10)
  1. XARELTO [Suspect]
     Indication: CEREBROVASCULAR ACCIDENT PROPHYLAXIS
     Route: 048
  2. XARELTO [Suspect]
     Indication: ATRIAL FIBRILLATION
     Route: 048
  3. ACIPHEX [Concomitant]
     Indication: PRODUCT USED FOR UNKNOWN INDICATION
     Route: 048
  4. LASIX [Concomitant]
     Dosage: AM dosing
     Route: 048
  5. LASIX [Concomitant]
     Dosage: PM dosing
     Route: 048
  6. DILANTIN [Concomitant]
     Dosage: 20 mg in AM and 40 mg in PM
     Route: 048
  7. LOTENSIN [Concomitant]
     Route: 048
  8. CARVEDILOL [Concomitant]
     Route: 048
  9. LIPITOR [Concomitant]
     Route: 048
  10. DIAZEPAM [Concomitant]
     Route: 048

REACTIONS (4)
  - Haemorrhage intracranial [Unknown]
  - Trismus [Unknown]
  - Pain in extremity [Unknown]
  - Syncope [Recovered/Resolved]
